FAERS Safety Report 18171333 (Version 2)
Quarter: 2020Q3

REPORT INFORMATION
  Report Type: Spontaneous
  Country: US (occurrence: US)
  Receive Date: 20200819
  Receipt Date: 20200909
  Transmission Date: 20201103
  Serious: No
  Sender: FDA-Public Use
  Company Number: US-TEVA-2020-US-1816856

PATIENT
  Age: 22 Year
  Sex: Female
  Weight: 81.6 kg

DRUGS (3)
  1. TREPROSTINIL. [Suspect]
     Active Substance: TREPROSTINIL
     Dosage: DOSE: 114 NG/KG/MIN
     Route: 065
  2. ZYDUS BOSENTAN [Suspect]
     Active Substance: BOSENTAN
     Indication: PULMONARY ARTERIAL HYPERTENSION
     Route: 048
     Dates: start: 20200217
  3. ELIQUIS [Concomitant]
     Active Substance: APIXABAN

REACTIONS (10)
  - Presyncope [Recovering/Resolving]
  - Pain in jaw [Recovering/Resolving]
  - Irritable bowel syndrome [Unknown]
  - Blood disorder [Unknown]
  - Feeling hot [Unknown]
  - Rash [Unknown]
  - Diarrhoea [Unknown]
  - Sleep disorder [Unknown]
  - Flushing [Unknown]
  - Headache [Unknown]

NARRATIVE: CASE EVENT DATE: 2020
